FAERS Safety Report 17122583 (Version 1)
Quarter: 2019Q4

REPORT INFORMATION
  Report Type: Spontaneous
  Country: FR (occurrence: FR)
  Receive Date: 20191206
  Receipt Date: 20191206
  Transmission Date: 20200122
  Serious: Yes (Hospitalization)
  Sender: FDA-Public Use
  Company Number: FR-PFIZER INC-2019521137

PATIENT
  Age: 37 Year
  Sex: Male

DRUGS (3)
  1. SANMIGRAN [Concomitant]
     Active Substance: PIZOTYLINE MALEATE
     Indication: MIGRAINE
     Dosage: UNK
     Route: 048
  2. SALAZOPYRINE [Suspect]
     Active Substance: SULFASALAZINE
     Indication: RHEUMATIC DISORDER
     Dosage: 2 G, 1X/DAY
     Route: 048
     Dates: start: 20191010, end: 20191025
  3. SUMATRIPTAN. [Concomitant]
     Active Substance: SUMATRIPTAN
     Indication: MIGRAINE
     Dosage: UNK
     Route: 048

REACTIONS (6)
  - Lymphopenia [Recovered/Resolved]
  - Erythema [Recovering/Resolving]
  - Lymphadenitis [Recovering/Resolving]
  - Neutropenia [Recovered/Resolved]
  - Thrombocytopenia [Recovered/Resolved]
  - Leukopenia [Recovered/Resolved]

NARRATIVE: CASE EVENT DATE: 20191027
